FAERS Safety Report 5470985-3 (Version None)
Quarter: 2007Q3

REPORT INFORMATION
  Report Type: 
  Country: None (occurrence: None)
  Receive Date: 20070928
  Receipt Date: 20070926
  Transmission Date: 20080115
  Serious: Yes (Hospitalization)
  Sender: FDA-Public Use
  Company Number: A0678948A

PATIENT
  Age: 67 Year
  Sex: Female
  Weight: 86.4 kg

DRUGS (10)
  1. LAPATINIB [Suspect]
     Indication: BREAST CANCER
     Dosage: 1500MG PER DAY
     Route: 048
     Dates: start: 20070723
  2. OPIUM TINCTURE [Suspect]
     Route: 048
     Dates: start: 20070919, end: 20070920
  3. IMODIUM [Concomitant]
     Dosage: 2MG VARIABLE DOSE
     Route: 048
  4. ASPIRIN [Concomitant]
     Dosage: 81MG PER DAY
     Route: 048
     Dates: start: 20000101
  5. ATIVAN [Concomitant]
     Dosage: .5MG AS REQUIRED
     Route: 048
     Dates: start: 19950101
  6. CALCIUM + D [Concomitant]
     Dosage: 1200MG PER DAY
     Route: 048
     Dates: start: 20070724
  7. ESOMEPRAZOLE MAGNESIUM [Concomitant]
     Dates: start: 20070831
  8. NEXIUM [Concomitant]
     Dosage: 20MG PER DAY
     Route: 048
  9. DIPHENOXYLATE HCL + ATROPINE SULFATE [Concomitant]
  10. LETROZOLE [Concomitant]
     Indication: BREAST CANCER

REACTIONS (11)
  - ASTHENIA [None]
  - DECREASED APPETITE [None]
  - DEHYDRATION [None]
  - DIARRHOEA [None]
  - DRUG TOXICITY [None]
  - EATING DISORDER [None]
  - HYPOKALAEMIA [None]
  - NAUSEA [None]
  - SYNCOPE [None]
  - URINARY TRACT INFECTION [None]
  - VOMITING [None]
